FAERS Safety Report 7421092-1 (Version None)
Quarter: 2011Q2

REPORT INFORMATION
  Report Type: 
  Country: None (occurrence: None)
  Receive Date: 20110418
  Receipt Date: 20110404
  Transmission Date: 20111010
  Serious: Yes (Hospitalization)
  Sender: FDA-Public Use
  Company Number: US-BAYER-201039750NA

PATIENT
  Age: 33 Year
  Sex: Female
  Weight: 88.435 kg

DRUGS (8)
  1. LABETALOL [Concomitant]
  2. YASMIN [Suspect]
     Indication: DYSMENORRHOEA
  3. HYDROCHLOROTHIAZIDE [Concomitant]
     Indication: HYPERTENSION
     Dosage: UNK UNK, QD
     Dates: start: 20080101
  4. YAZ [Suspect]
     Indication: CONTRACEPTION
     Dosage: UNK UNK, QD
     Route: 048
     Dates: start: 20090501, end: 20091101
  5. YAZ [Suspect]
     Indication: DYSMENORRHOEA
  6. YASMIN [Suspect]
     Indication: CONTRACEPTION
     Dosage: UNK
     Dates: start: 20090501, end: 20091101
  7. MOTRIN [Concomitant]
  8. NAPROXEN (ALEVE) [Concomitant]

REACTIONS (2)
  - PULMONARY EMBOLISM [None]
  - DEEP VEIN THROMBOSIS [None]
